FAERS Safety Report 14377944 (Version 1)
Quarter: 2018Q1

REPORT INFORMATION
  Report Type: Spontaneous
  Country: AT (occurrence: AT)
  Receive Date: 20180111
  Receipt Date: 20180111
  Transmission Date: 20180509
  Serious: Yes (Hospitalization, Other)
  Sender: FDA-Public Use
  Company Number: AT-PFIZER INC-2016306746

PATIENT
  Age: 60 Year
  Sex: Male
  Weight: 82 kg

DRUGS (11)
  1. SEROQUEL XR [Suspect]
     Active Substance: QUETIAPINE FUMARATE
     Dosage: 600 MG, UNK
     Route: 048
     Dates: start: 201401, end: 201602
  2. TRITTICO [Concomitant]
     Active Substance: TRAZODONE HYDROCHLORIDE
     Dosage: UNK
     Route: 048
     Dates: start: 2016
  3. ZOLPIDEM [Concomitant]
     Active Substance: ZOLPIDEM\ZOLPIDEM TARTRATE
     Dosage: 10 MG, UNK
     Route: 048
     Dates: start: 2016
  4. CONCOR [Concomitant]
     Active Substance: BISOPROLOL FUMARATE
     Dosage: 1.25 MG, UNK
     Route: 048
     Dates: start: 2016
  5. PRAXITEN [Concomitant]
     Active Substance: OXAZEPAM
     Dosage: 30 MG, UNK
     Route: 048
     Dates: start: 20160421
  6. ABILIFY [Suspect]
     Active Substance: ARIPIPRAZOLE
     Dosage: 15 MG, UNK
     Route: 048
     Dates: start: 201412, end: 20160419
  7. EFECTIN ER [Suspect]
     Active Substance: VENLAFAXINE HYDROCHLORIDE
     Dosage: 150 MG, UNK
     Route: 048
     Dates: start: 2015
  8. LISINOPRIL. [Concomitant]
     Active Substance: LISINOPRIL
     Dosage: 5 MG, UNK
     Route: 048
     Dates: start: 2016
  9. SEROQUEL XR [Suspect]
     Active Substance: QUETIAPINE FUMARATE
     Dosage: 400 MG, UNK
     Route: 048
     Dates: start: 201602, end: 20160415
  10. SIMVASTATIN. [Concomitant]
     Active Substance: SIMVASTATIN
     Dosage: 40 MG, UNK
     Route: 048
     Dates: start: 2015
  11. JANUMET [Concomitant]
     Active Substance: METFORMIN HYDROCHLORIDE\SITAGLIPTIN PHOSPHATE
     Dosage: 2 DF, DAILY, 50 MG /1000 MG
     Route: 048
     Dates: start: 2015

REACTIONS (3)
  - Off label use [Unknown]
  - Tardive dyskinesia [Recovered/Resolved]
  - Reduced facial expression [Unknown]

NARRATIVE: CASE EVENT DATE: 201512
